FAERS Safety Report 5573240-6 (Version None)
Quarter: 2007Q4

REPORT INFORMATION
  Report Type: 
  Country: None (occurrence: None)
  Receive Date: 20071220
  Receipt Date: 20071213
  Transmission Date: 20080405
  Serious: Yes (Hospitalization)
  Sender: FDA-Public Use
  Company Number: 2007-05762

PATIENT
  Age: 45 Year
  Sex: Female

DRUGS (2)
  1. COLCHICUM JTL LIQ [Suspect]
     Indication: FAMILIAL MEDITERRANEAN FEVER
     Dosage: 2 MG, DAILY; 1 MG, DAILY
     Dates: start: 19850101, end: 20050601
  2. COLCHICUM JTL LIQ [Suspect]
     Indication: FAMILIAL MEDITERRANEAN FEVER
     Dosage: 2 MG, DAILY; 1 MG, DAILY
     Dates: start: 20050601, end: 20050601

REACTIONS (2)
  - NEUROMYOPATHY [None]
  - OPTIC NEUROPATHY [None]
